FAERS Safety Report 7400099-4 (Version None)
Quarter: 2011Q2

REPORT INFORMATION
  Report Type: 
  Country: None (occurrence: None)
  Receive Date: 20110407
  Receipt Date: 20100527
  Transmission Date: 20111010
  Serious: Yes (Other)
  Sender: FDA-Public Use
  Company Number: PHHY2010DE90854

PATIENT

DRUGS (1)
  1. EXTAVIA [Suspect]
     Dosage: UNK
     Dates: start: 20100428

REACTIONS (4)
  - MULTIPLE SCLEROSIS RELAPSE [None]
  - FATIGUE [None]
  - SKIN REACTION [None]
  - PHLEBITIS [None]
